FAERS Safety Report 4588110-X (Version None)
Quarter: 2005Q1

REPORT INFORMATION
  Report Type: 
  Country: None (occurrence: None)
  Receive Date: 20050216
  Receipt Date: 20050102
  Transmission Date: 20050727
  Serious: Yes (Other)
  Sender: FDA-Public Use
  Company Number: GBS050216571

PATIENT
  Sex: Female

DRUGS (1)
  1. YENTREVE (DULOXETINE HYDROCHLORIDE) [Suspect]

REACTIONS (4)
  - NAUSEA [None]
  - SYNCOPE [None]
  - URINARY RETENTION [None]
  - VOMITING [None]
